FAERS Safety Report 4287359-3 (Version None)
Quarter: 2004Q1

REPORT INFORMATION
  Report Type: 
  Country: None (occurrence: None)
  Receive Date: 20040209
  Receipt Date: 20030602
  Transmission Date: 20041129
  Serious: Yes (Other)
  Sender: FDA-Public Use
  Company Number: US-GLAXOSMITHKLINE-A0411657A

PATIENT
  Age: 33 Year
  Sex: Female
  Weight: 77.3 kg

DRUGS (1)
  1. PAXIL CR [Suspect]
     Route: 048

REACTIONS (7)
  - ABNORMAL DREAMS [None]
  - DRUG WITHDRAWAL SYNDROME [None]
  - HYPERHIDROSIS [None]
  - INSOMNIA [None]
  - IRRITABILITY [None]
  - PARAESTHESIA [None]
  - TREMOR [None]
